FAERS Safety Report 7088860-X (Version None)
Quarter: 2010Q4

REPORT INFORMATION
  Report Type: 
  Country: None (occurrence: None)
  Receive Date: 20101108
  Receipt Date: 20101102
  Transmission Date: 20110411
  Serious: Yes (Other)
  Sender: FDA-Public Use
  Company Number: US-PFIZER INC-2010137824

PATIENT
  Sex: Female
  Weight: 70 kg

DRUGS (5)
  1. CHANTIX [Suspect]
     Indication: SMOKING CESSATION THERAPY
     Dosage: UNK
     Route: 048
     Dates: start: 20101015
  2. CHANTIX [Suspect]
     Dosage: 0.5 MG, 1X/DAY
     Route: 048
     Dates: start: 20101016
  3. CHANTIX [Suspect]
     Dosage: 0.5 MG, 2X/DAY
     Route: 048
  4. CELEXA [Concomitant]
     Indication: DEPRESSION
     Dosage: 40 MG, 1X/DAY
  5. XANAX [Concomitant]
     Indication: ANXIETY
     Dosage: 4 MG, AS NEEDED

REACTIONS (12)
  - BLOOD URINE PRESENT [None]
  - CATHETER SITE PAIN [None]
  - DEPRESSED MOOD [None]
  - DYSURIA [None]
  - FATIGUE [None]
  - HIATUS HERNIA [None]
  - INFECTION [None]
  - MALAISE [None]
  - MICTURITION URGENCY [None]
  - RASH [None]
  - URINARY RETENTION [None]
  - VAGINAL NEOPLASM [None]
